FAERS Safety Report 21458578 (Version 5)
Quarter: 2022Q4

REPORT INFORMATION
  Report Type: Spontaneous
  Country: US (occurrence: US)
  Receive Date: 20221014
  Receipt Date: 20221205
  Transmission Date: 20230113
  Serious: Yes (Other)
  Sender: FDA-Public Use
  Company Number: US-Calliditas-2022CAL00377

PATIENT
  Age: 41 Year
  Sex: Male

DRUGS (5)
  1. TARPEYO [Suspect]
     Active Substance: BUDESONIDE
     Indication: IgA nephropathy
     Dosage: 16 MG (4 MG CAPSULES) ONCE DAILY
     Route: 048
     Dates: start: 20220507
  2. TYLENOL [Concomitant]
     Active Substance: ACETAMINOPHEN
  3. LOSARTAN [Concomitant]
     Active Substance: LOSARTAN
  4. VELTASSA [Concomitant]
     Active Substance: PATIROMER
  5. AMLODIPINE [Concomitant]
     Active Substance: AMLODIPINE BESYLATE

REACTIONS (8)
  - Product use issue [Recovered/Resolved]
  - Paraesthesia [Recovered/Resolved]
  - Vomiting [Recovered/Resolved]
  - Steroid withdrawal syndrome [Recovered/Resolved]
  - Fluid intake reduced [Recovered/Resolved]
  - Urine abnormality [Recovered/Resolved]
  - Hypertensive urgency [Not Recovered/Not Resolved]
  - Blood potassium increased [Unknown]

NARRATIVE: CASE EVENT DATE: 20220501
